FAERS Safety Report 13612650 (Version 1)
Quarter: 2017Q2

REPORT INFORMATION
  Report Type: Spontaneous
  Country: GB (occurrence: GB)
  Receive Date: 20170605
  Receipt Date: 20170605
  Transmission Date: 20170830
  Serious: Yes (Hospitalization)
  Sender: FDA-Public Use
  Company Number: GB-TEVA-773766ACC

PATIENT
  Age: 78 Year
  Sex: Male

DRUGS (20)
  1. ATORVASTATIN [Concomitant]
     Active Substance: ATORVASTATIN
  2. NICORANDIL [Concomitant]
     Active Substance: NICORANDIL
  3. SERTRALINE [Suspect]
     Active Substance: SERTRALINE HYDROCHLORIDE
     Dosage: 100 MILLIGRAM DAILY;
     Route: 048
  4. FLUTICASONE FUROATE [Concomitant]
     Active Substance: FLUTICASONE FUROATE
  5. BRINZOLAMIDE [Concomitant]
     Active Substance: BRINZOLAMIDE
  6. GAVISCON [Concomitant]
     Active Substance: ALUMINUM HYDROXIDE\MAGNESIUM CARBONATE
  7. NEBIVOLOL. [Concomitant]
     Active Substance: NEBIVOLOL
  8. BUSPIRONE [Concomitant]
     Active Substance: BUSPIRONE HYDROCHLORIDE
  9. SALBUTAMOL [Concomitant]
     Active Substance: ALBUTEROL
  10. FINASTERIDE. [Concomitant]
     Active Substance: FINASTERIDE
  11. SPIRONOLACTONE. [Suspect]
     Active Substance: SPIRONOLACTONE
     Dosage: 25 MILLIGRAM DAILY;
     Route: 048
     Dates: end: 20170515
  12. SPIRONOLACTONE. [Suspect]
     Active Substance: SPIRONOLACTONE
  13. AMIODARONE [Concomitant]
     Active Substance: AMIODARONE
  14. RANITIDINE. [Concomitant]
     Active Substance: RANITIDINE
  15. WARFARIN SODIUM. [Concomitant]
     Active Substance: WARFARIN SODIUM
  16. BETAHISTINE [Concomitant]
     Active Substance: BETAHISTINE
  17. BIMATOPROST. [Concomitant]
     Active Substance: BIMATOPROST
  18. CARBOCYSTEINE [Concomitant]
     Active Substance: CARBOCYSTEINE
  19. GLYCERYL TRINITRATE [Concomitant]
     Active Substance: NITROGLYCERIN
  20. LACTULOSE. [Concomitant]
     Active Substance: LACTULOSE

REACTIONS (1)
  - Hypernatraemia [Recovering/Resolving]
